FAERS Safety Report 7485657-3 (Version None)
Quarter: 2011Q2

REPORT INFORMATION
  Report Type: 
  Country: None (occurrence: None)
  Receive Date: 20110517
  Receipt Date: 20110503
  Transmission Date: 20111010
  Serious: Yes (Other)
  Sender: FDA-Public Use
  Company Number: CA-JNJFOC-20110502062

PATIENT
  Sex: Female
  Weight: 78.2 kg

DRUGS (2)
  1. IMURAN [Concomitant]
  2. REMICADE [Suspect]
     Indication: CROHN'S DISEASE
     Route: 042
     Dates: start: 20080117

REACTIONS (1)
  - SYSTEMIC LUPUS ERYTHEMATOSUS [None]
